FAERS Safety Report 15229373 (Version 1)
Quarter: 2018Q3

REPORT INFORMATION
  Report Type: Spontaneous
  Country: US (occurrence: US)
  Receive Date: 20180707
  Receipt Date: 20180707
  Transmission Date: 20181010
  Serious: No
  Sender: FDA-Public Use
  Company Number: None

PATIENT
  Age: 42 Year
  Sex: Female
  Weight: 54.45 kg

DRUGS (1)
  1. FLONASE [Suspect]
     Active Substance: FLUTICASONE PROPIONATE
     Indication: SEASONAL ALLERGY
     Dosage: ?          OTHER STRENGTH:50MCG PER SPRAY;QUANTITY:1 SPRAY(S);?
     Route: 055
     Dates: start: 20180703, end: 20180707

REACTIONS (1)
  - Rash [None]

NARRATIVE: CASE EVENT DATE: 20180703
